FAERS Safety Report 7987123-5 (Version None)
Quarter: 2011Q4

REPORT INFORMATION
  Report Type: 
  Country: None (occurrence: None)
  Receive Date: 20111216
  Receipt Date: 20110318
  Transmission Date: 20120403
  Serious: No
  Sender: FDA-Public Use
  Company Number: US-BRISTOL-MYERS SQUIBB COMPANY-15618861

PATIENT
  Age: 51 Year
  Sex: Female
  Weight: 100 kg

DRUGS (9)
  1. HYDROCODONE BITARTRATE [Concomitant]
  2. ASMANEX TWISTHALER [Concomitant]
  3. SINGULAIR [Concomitant]
  4. PROVENTIL GENTLEHALER [Concomitant]
     Route: 055
  5. ABILIFY [Suspect]
     Indication: BIPOLAR DISORDER
     Dosage: PILL
     Dates: start: 20110317
  6. TOPAMAX [Concomitant]
  7. ASTELIN [Concomitant]
  8. LEXAPRO [Concomitant]
  9. NAPROXEN [Concomitant]

REACTIONS (3)
  - EAR CONGESTION [None]
  - NASAL CONGESTION [None]
  - VERTIGO [None]
